FAERS Safety Report 15811779 (Version 2)
Quarter: 2019Q1

REPORT INFORMATION
  Report Type: Spontaneous
  Country: PT (occurrence: PT)
  Receive Date: 20190111
  Receipt Date: 20190118
  Transmission Date: 20190417
  Serious: Yes (Life-Threatening, Hospitalization)
  Sender: FDA-Public Use
  Company Number: PHHY2018PT126231

PATIENT
  Age: 82 Year
  Sex: Male

DRUGS (1)
  1. BICALUTAMIDE. [Suspect]
     Active Substance: BICALUTAMIDE
     Indication: PROSTATE CANCER
     Dosage: 50 MG, QD
     Route: 048

REACTIONS (7)
  - Dermatitis allergic [Unknown]
  - Tracheobronchitis [Unknown]
  - Allergic reaction to excipient [Unknown]
  - Disease progression [Unknown]
  - Drug ineffective [Unknown]
  - Immune-mediated adverse reaction [Unknown]
  - Dyspnoea [Unknown]
